FAERS Safety Report 21266279 (Version 1)
Quarter: 2022Q3

REPORT INFORMATION
  Report Type: Spontaneous
  Country: US (occurrence: None)
  Receive Date: 20220829
  Receipt Date: 20220829
  Transmission Date: 20221027
  Serious: No
  Sender: FDA-Public Use
  Company Number: None

PATIENT
  Age: 30 Year
  Sex: Female
  Weight: 45.9 kg

DRUGS (11)
  1. MAGNESIUM CITRATE SALINE LAXATIVE [Suspect]
     Active Substance: MAGNESIUM CITRATE
     Indication: Constipation
     Dosage: OTHER QUANTITY : 10 OUNCE(S);?FREQUENCY : DAILY;?
     Route: 048
     Dates: start: 20220607, end: 20220719
  2. TRAZODONE [Concomitant]
     Active Substance: TRAZODONE HYDROCHLORIDE
  3. PROMETHAZINE [Concomitant]
     Active Substance: PROMETHAZINE HYDROCHLORIDE
  4. ZOFRAN [Concomitant]
     Active Substance: ONDANSETRON HYDROCHLORIDE
  5. URIBEL [Concomitant]
     Active Substance: HYOSCYAMINE SULFATE\METHENAMINE\METHYLENE BLUE\PHENYL SALICYLATE\SODIUM PHOSPHATE, MONOBASIC, MONOHY
  6. BACLOFEN [Concomitant]
     Active Substance: BACLOFEN
  7. GABAPENTIN [Concomitant]
     Active Substance: GABAPENTIN
  8. DUPIXENT [Concomitant]
     Active Substance: DUPILUMAB
  9. OXYBUTYNIN [Concomitant]
     Active Substance: OXYBUTYNIN
  10. SIMETHICONE (DIMETHICONE) [Concomitant]
     Active Substance: DIMETHICONE
  11. DOCUSATE SODIUM [Concomitant]
     Active Substance: DOCUSATE SODIUM

REACTIONS (23)
  - Abdominal distension [None]
  - Nausea [None]
  - Gastrointestinal pain [None]
  - Haemorrhoids [None]
  - Diarrhoea [None]
  - Urinary incontinence [None]
  - Anal incontinence [None]
  - Confusional state [None]
  - Delusion [None]
  - Delirium [None]
  - Urinary tract infection [None]
  - Ear pain [None]
  - Headache [None]
  - Neck pain [None]
  - Swelling [None]
  - Pain [None]
  - Neuralgia [None]
  - Lymph node pain [None]
  - Tremor [None]
  - Vertigo [None]
  - Constipation [None]
  - Food poisoning [None]
  - Recalled product administered [None]

NARRATIVE: CASE EVENT DATE: 20220623
